FAERS Safety Report 17543178 (Version 1)
Quarter: 2020Q1

REPORT INFORMATION
  Report Type: Spontaneous
  Country: US (occurrence: US)
  Receive Date: 20200316
  Receipt Date: 20200316
  Transmission Date: 20200409
  Serious: Yes (Hospitalization, Other)
  Sender: FDA-Public Use
  Company Number: US-AUROBINDO-AUR-APL-2020-012402

PATIENT
  Sex: Male

DRUGS (1)
  1. MILK OF MAGNESIA [Suspect]
     Active Substance: MAGNESIUM HYDROXIDE
     Indication: PRE-ECLAMPSIA
     Dosage: UNK
     Route: 064

REACTIONS (11)
  - Posturing [Unknown]
  - Infantile apnoea [Unknown]
  - Myoclonus [Unknown]
  - Seizure like phenomena [Unknown]
  - Tardive dyskinesia [Unknown]
  - Excessive eye blinking [Unknown]
  - Hypotonia neonatal [Not Recovered/Not Resolved]
  - Dyskinesia [Unknown]
  - Bradycardia [Unknown]
  - Hypersomnia [Unknown]
  - Foetal exposure during pregnancy [Unknown]
